FAERS Safety Report 24190332 (Version 1)
Quarter: 2024Q3

REPORT INFORMATION
  Report Type: Spontaneous
  Country: US (occurrence: None)
  Receive Date: 20240807
  Receipt Date: 20240807
  Transmission Date: 20241016
  Serious: Yes (Other)
  Sender: Public
  Company Number: None

PATIENT
  Age: 27 Year
  Sex: Female
  Weight: 78.75 kg

DRUGS (1)
  1. XEMBIFY [Suspect]
     Active Substance: HUMAN IMMUNOGLOBULIN G
     Indication: Immunodeficiency common variable
     Dosage: 10 GRAM(S) WEEKLY SUBCUTANEOUS ?
     Route: 058
     Dates: start: 20230518

REACTIONS (2)
  - Injection site swelling [None]
  - Infusion site necrosis [None]

NARRATIVE: CASE EVENT DATE: 20240720
